FAERS Safety Report 18166094 (Version 1)
Quarter: 2020Q3

REPORT INFORMATION
  Report Type: Spontaneous
  Country: US (occurrence: US)
  Receive Date: 20200818
  Receipt Date: 20200818
  Transmission Date: 20201103
  Serious: No
  Sender: FDA-Public Use
  Company Number: US-TEVA-2020-US-1814637

PATIENT
  Age: 84 Year
  Sex: Female

DRUGS (1)
  1. MUPIROCIN. [Suspect]
     Active Substance: MUPIROCIN
     Indication: RHINORRHOEA
     Dosage: ROUTE OF ADMIN: INTRANASAL. USED ONCE IN THE AM AND ONCE AT NIGHT
     Route: 065
     Dates: start: 20200807

REACTIONS (6)
  - Epistaxis [Recovered/Resolved]
  - Rhinorrhoea [Unknown]
  - Off label use [Unknown]
  - Nausea [Recovered/Resolved]
  - Discomfort [Unknown]
  - Haemoptysis [Recovered/Resolved]

NARRATIVE: CASE EVENT DATE: 202008
